FAERS Safety Report 5733515-4 (Version None)
Quarter: 2008Q2

REPORT INFORMATION
  Report Type: 
  Country: None (occurrence: None)
  Receive Date: 20080509
  Receipt Date: 20080429
  Transmission Date: 20081010
  Serious: Yes (Hospitalization)
  Sender: FDA-Public Use
  Company Number: GB-GILEAD-2008-0016259

PATIENT
  Age: 44 Year
  Sex: Male

DRUGS (1)
  1. VIREAD [Suspect]
     Indication: HIV INFECTION
     Dates: start: 20080301, end: 20080412

REACTIONS (1)
  - HYPOKALAEMIA [None]
